FAERS Safety Report 25446625 (Version 1)
Quarter: 2025Q2

REPORT INFORMATION
  Report Type: Report from Study
  Country: CN (occurrence: CN)
  Receive Date: 20250617
  Receipt Date: 20250617
  Transmission Date: 20250716
  Serious: Yes (Hospitalization)
  Sender: TAKEDA
  Company Number: CN-TAKEDA-2025TUS054834

PATIENT
  Sex: Female

DRUGS (1)
  1. IXAZOMIB [Suspect]
     Active Substance: IXAZOMIB
     Indication: Plasma cell myeloma

REACTIONS (4)
  - Sputum retention [Unknown]
  - Asthenia [Unknown]
  - Diarrhoea [Unknown]
  - Bedridden [Unknown]
